FAERS Safety Report 9442432 (Version 1)
Quarter: 2013Q3

REPORT INFORMATION
  Report Type: Spontaneous
  Country: US (occurrence: US)
  Receive Date: 20130806
  Receipt Date: 20130806
  Transmission Date: 20140515
  Serious: Yes (Other)
  Sender: FDA-Public Use
  Company Number: US-BAYER-2013-091948

PATIENT
  Age: 60 Year
  Sex: Male

DRUGS (7)
  1. CIPRO [Suspect]
  2. PROMETHAZINE [Concomitant]
  3. OMEGA 3-6-9 [Concomitant]
  4. MULTI VITAMIN [Concomitant]
  5. STOOL SOFTENER [Concomitant]
  6. MELATONIN [Concomitant]
  7. MILK THISTLE [Concomitant]

REACTIONS (5)
  - Hepatic failure [None]
  - Gamma-glutamyltransferase abnormal [None]
  - Gamma-glutamyltransferase increased [None]
  - Renal impairment [None]
  - Blood creatinine increased [None]
